FAERS Safety Report 8975024 (Version 2)
Quarter: 2013Q1

REPORT INFORMATION
  Report Type: Spontaneous
  Country: US (occurrence: US)
  Receive Date: 20121219
  Receipt Date: 20130218
  Transmission Date: 20140127
  Serious: Yes (Other)
  Sender: FDA-Public Use
  Company Number: US-ELI_LILLY_AND_COMPANY-US201209000891

PATIENT
  Sex: Female
  Weight: 131.52 kg

DRUGS (2)
  1. CYMBALTA [Suspect]
     Indication: FIBROMYALGIA
     Dosage: 20 MG, QD
     Dates: start: 20120522
  2. TOPAMAX [Concomitant]
     Dosage: 25 MG, UNK
     Dates: start: 20121108

REACTIONS (5)
  - Alanine aminotransferase increased [Unknown]
  - Aspartate aminotransferase increased [Unknown]
  - Aphasia [Recovered/Resolved]
  - Migraine [Recovered/Resolved]
  - Drug interaction [Unknown]
